FAERS Safety Report 9439842 (Version 4)
Quarter: 2014Q1

REPORT INFORMATION
  Report Type: Spontaneous
  Country: US (occurrence: US)
  Receive Date: 20130805
  Receipt Date: 20140107
  Transmission Date: 20141002
  Serious: Yes (Hospitalization, Other)
  Sender: FDA-Public Use
  Company Number: US-SANOFI-AVENTIS-2013SA077644

PATIENT
  Age: 82 Year
  Sex: Male
  Weight: 68 kg

DRUGS (10)
  1. LANTUS SOLOSTAR [Suspect]
     Indication: TYPE 2 DIABETES MELLITUS
     Dosage: DOSE:25 UNIT(S)
     Route: 051
     Dates: start: 2007
  2. LANTUS SOLOSTAR [Suspect]
     Indication: TYPE 2 DIABETES MELLITUS
     Dosage: DOSE:25 UNIT(S)
     Route: 051
     Dates: start: 2007
  3. SOLOSTAR [Concomitant]
     Indication: TYPE 2 DIABETES MELLITUS
     Dates: start: 2007
  4. SOLOSTAR [Concomitant]
     Indication: TYPE 2 DIABETES MELLITUS
     Dates: start: 2007
  5. METFORMIN [Concomitant]
     Indication: DIABETES MELLITUS
     Route: 065
     Dates: start: 2000
  6. AMLODIPINE [Concomitant]
     Indication: BLOOD PRESSURE
     Route: 065
     Dates: start: 2013
  7. SIMVASTATIN [Concomitant]
     Indication: BLOOD CHOLESTEROL
     Route: 065
     Dates: start: 2000
  8. VITAMIN C [Concomitant]
     Dosage: DOSE:500 UNIT(S)
  9. VITAMIN E [Concomitant]
  10. NOVOLOG [Concomitant]

REACTIONS (6)
  - Cataract [Unknown]
  - Vision blurred [Not Recovered/Not Resolved]
  - Carcinoma in situ of skin [Unknown]
  - Hearing impaired [Unknown]
  - Glycosylated haemoglobin increased [Unknown]
  - Injection site injury [Unknown]
